FAERS Safety Report 15421277 (Version 5)
Quarter: 2019Q1

REPORT INFORMATION
  Report Type: Report from Study
  Country: US (occurrence: US)
  Receive Date: 20180924
  Receipt Date: 20190311
  Transmission Date: 20190417
  Serious: Yes (Hospitalization)
  Sender: FDA-Public Use
  Company Number: US-ACTELION-A-NJ2018-178808

PATIENT
  Age: 78 Year
  Sex: Female
  Weight: 110.2 kg

DRUGS (2)
  1. OPSUMIT [Suspect]
     Active Substance: MACITENTAN
     Indication: PULMONARY ARTERIAL HYPERTENSION
     Dosage: 10 MG, QD
     Route: 048
     Dates: start: 20170221
  2. ADCIRCA [Concomitant]
     Active Substance: TADALAFIL

REACTIONS (10)
  - Malaise [Unknown]
  - Hospitalisation [Unknown]
  - Tremor [Recovered/Resolved with Sequelae]
  - Fall [Unknown]
  - Pain [Unknown]
  - Headache [Unknown]
  - Rash [Unknown]
  - Chest pain [Recovered/Resolved with Sequelae]
  - Right ventricular failure [Recovered/Resolved]
  - Condition aggravated [Recovered/Resolved]

NARRATIVE: CASE EVENT DATE: 20180827
